FAERS Safety Report 4556154-X (Version None)
Quarter: 2005Q1

REPORT INFORMATION
  Report Type: 
  Country: None (occurrence: None)
  Receive Date: 20050119
  Receipt Date: 20050111
  Transmission Date: 20050727
  Serious: Yes (Other)
  Sender: FDA-Public Use
  Company Number: GR-ABBOTT-05P-066-0286005-00

PATIENT
  Age: 65 Year
  Sex: Female
  Weight: 70 kg

DRUGS (10)
  1. CISATRACURIUM [Suspect]
     Indication: POSTOPERATIVE ANALGESIA
     Dosage: 4MLS
     Route: 008
  2. CISATRACURIUM [Suspect]
     Indication: INTUBATION
     Route: 042
  3. CISATRACURIUM [Suspect]
     Indication: ABDOMINAL WALL OPERATION
     Dosage: 2 ML
     Route: 042
  4. LIDOCAINE 2% [Concomitant]
     Indication: EPIDURAL ANAESTHESIA
     Dosage: 2%
     Route: 008
  5. BUPIVACAINE [Concomitant]
     Indication: EPIDURAL ANAESTHESIA
     Route: 008
  6. THIOPENTAL SODIUM [Concomitant]
     Indication: INDUCTION OF ANAESTHESIA
     Route: 042
  7. FENTANYL [Concomitant]
     Indication: INDUCTION OF ANAESTHESIA
     Route: 042
  8. ISOFLURANE [Concomitant]
     Indication: MAINTENANCE OF ANAESTHESIA
     Route: 055
  9. NITROUS OXIDE [Concomitant]
     Indication: MAINTENANCE OF ANAESTHESIA
     Route: 055
  10. OXYGEN [Concomitant]
     Indication: MAINTENANCE OF ANAESTHESIA
     Route: 055

REACTIONS (2)
  - ANAESTHETIC COMPLICATION NEUROLOGICAL [None]
  - MEDICATION ERROR [None]
